FAERS Safety Report 13791035 (Version 1)
Quarter: 2017Q3

REPORT INFORMATION
  Report Type: Spontaneous
  Country: US (occurrence: US)
  Receive Date: 20170725
  Receipt Date: 20170725
  Transmission Date: 20171127
  Serious: Yes (Hospitalization)
  Sender: FDA-Public Use
  Company Number: US-PFIZER INC-2017315501

PATIENT
  Age: 65 Year
  Sex: Female

DRUGS (1)
  1. SOLU-MEDROL [Suspect]
     Active Substance: METHYLPREDNISOLONE SODIUM SUCCINATE
     Dosage: UNK

REACTIONS (8)
  - Arthralgia [Unknown]
  - Urinary tract infection [Unknown]
  - Fatigue [Unknown]
  - Pain in extremity [Unknown]
  - Sepsis [Unknown]
  - Aspartate aminotransferase increased [Unknown]
  - Joint stiffness [Unknown]
  - Alanine aminotransferase increased [Unknown]
